FAERS Safety Report 13802218 (Version 1)
Quarter: 2017Q3

REPORT INFORMATION
  Report Type: Spontaneous
  Country: US (occurrence: US)
  Receive Date: 20170727
  Receipt Date: 20170727
  Transmission Date: 20171127
  Serious: Yes (Other)
  Sender: FDA-Public Use
  Company Number: None

PATIENT
  Sex: Female
  Weight: 67.5 kg

DRUGS (18)
  1. TRIAMETHOSION TOPICAL CREAM [Concomitant]
  2. MAGNESIUM [Concomitant]
     Active Substance: MAGNESIUM
  3. ESTRADIOL TRANSDERMAL SYSTEM [Concomitant]
     Active Substance: ESTRADIOL
  4. ADRENAL ESSENCE [Concomitant]
  5. HUMIRA [Suspect]
     Active Substance: ADALIMUMAB
     Indication: CROHN^S DISEASE
     Dosage: QUANTITY:1 INJECTION(S);OTHER FREQUENCY:EVERY 2 WEEKS;?
     Route: 058
     Dates: start: 20131213, end: 20160817
  6. PROGESTERONE. [Concomitant]
     Active Substance: PROGESTERONE
  7. CLOBETOSOL TOPICAL CREAM [Concomitant]
  8. GI PROTECT [Concomitant]
  9. MERCAPTUPURIN [Concomitant]
  10. POTASSIUM CITRATE. [Concomitant]
     Active Substance: POTASSIUM CITRATE
  11. CALCIUM +D [Concomitant]
     Active Substance: CALCIUM\VITAMIN D
  12. COMPLEX VITAMIN B [Concomitant]
  13. BOSWELLIA [Concomitant]
  14. BETAIN HCG [Concomitant]
  15. LOW DOSE NALTREXON [Concomitant]
  16. POTASSIUM [Concomitant]
     Active Substance: POTASSIUM
  17. ZYRTEC [Concomitant]
     Active Substance: CETIRIZINE HYDROCHLORIDE
  18. RED YEAST RICE [Concomitant]
     Active Substance: DIETARY SUPPLEMENT

REACTIONS (9)
  - Eczema [None]
  - Skin atrophy [None]
  - Increased tendency to bruise [None]
  - Skin papilloma [None]
  - Pruritus [None]
  - Pain of skin [None]
  - Skin haemorrhage [None]
  - Laceration [None]
  - Impaired healing [None]

NARRATIVE: CASE EVENT DATE: 20160601
